FAERS Safety Report 11235513 (Version 1)
Quarter: 2015Q3

REPORT INFORMATION
  Report Type: Spontaneous
  Country: US (occurrence: US)
  Receive Date: 20150702
  Receipt Date: 20150702
  Transmission Date: 20151125
  Serious: Yes (Other)
  Sender: FDA-Public Use
  Company Number: US-009507513-1506USA015511

PATIENT
  Sex: Male

DRUGS (1)
  1. PROPECIA [Suspect]
     Active Substance: FINASTERIDE

REACTIONS (11)
  - Suicidal ideation [Unknown]
  - Insomnia [Unknown]
  - Loss of libido [Unknown]
  - Facial wasting [Unknown]
  - Muscle atrophy [Unknown]
  - Memory impairment [Unknown]
  - Genital disorder male [Unknown]
  - Skin wrinkling [Unknown]
  - Cognitive disorder [Unknown]
  - Amnesia [Unknown]
  - Dry skin [Unknown]
